FAERS Safety Report 25608490 (Version 1)
Quarter: 2025Q3

REPORT INFORMATION
  Report Type: Other
  Country: US (occurrence: US)
  Receive Date: 20250726
  Receipt Date: 20250726
  Transmission Date: 20251020
  Serious: Yes (Hospitalization, Other)
  Sender: COREPHARMA LLC
  Company Number: US-CorePharma LLC-2181274

PATIENT
  Age: 64 Year
  Sex: Female

DRUGS (4)
  1. TORSEMIDE [Suspect]
     Active Substance: TORSEMIDE
     Indication: Product used for unknown indication
  2. AMLODIPINE [Suspect]
     Active Substance: AMLODIPINE BESYLATE
  3. SERTRALINE [Concomitant]
     Active Substance: SERTRALINE HYDROCHLORIDE
  4. APIXABAN [Interacting]
     Active Substance: APIXABAN

REACTIONS (7)
  - Acute kidney injury [Unknown]
  - Intentional overdose [Unknown]
  - Drug interaction [Unknown]
  - Dizziness [Unknown]
  - Movement disorder [Unknown]
  - Haemodynamic instability [Unknown]
  - Toxicity to various agents [Unknown]
